FAERS Safety Report 8891806 (Version 1)
Quarter: 2012Q4

REPORT INFORMATION
  Report Type: 
  Country: US (occurrence: US)
  Receive Date: 20121107
  Receipt Date: 20121107
  Transmission Date: 20130627
  Serious: No
  Sender: FDA-Public Use
  Company Number: US-AMGEN-USASP2011058462

PATIENT
  Age: 81 Year
  Sex: Male
  Weight: 150 kg

DRUGS (12)
  1. ENBREL [Suspect]
     Indication: PRODUCT USED FOR UNKNOWN INDICATION
     Dosage: 50 mg, qwk
  2. COZAAR [Concomitant]
     Dosage: 50 mg, UNK
  3. CELEBREX [Concomitant]
     Dosage: 50 mg, UNK
  4. METHOTREXATE [Concomitant]
     Dosage: 2.5 mg, UNK
  5. LIPITOR [Concomitant]
     Dosage: 20 mg, UNK
  6. TRAZODONE [Concomitant]
     Dosage: 50 mg, UNK
  7. FOLIC ACID [Concomitant]
     Dosage: 1 mg, UNK
  8. IMURAN                             /00001501/ [Concomitant]
     Dosage: 50 mg, UNK
  9. PRILOSEC                           /00661201/ [Concomitant]
     Dosage: 40 mg, UNK
  10. ASPIRIN [Concomitant]
     Dosage: 81 mg, UNK
  11. MULTIVITAMIN                       /00097801/ [Concomitant]
     Dosage: UNK
  12. VITAMIN D /00107901/ [Concomitant]

REACTIONS (1)
  - Nasopharyngitis [Unknown]
